FAERS Safety Report 6506137-5 (Version None)
Quarter: 2009Q4

REPORT INFORMATION
  Report Type: 
  Country: None (occurrence: None)
  Receive Date: 20091218
  Receipt Date: 20091214
  Transmission Date: 20100525
  Serious: Yes (Disabling)
  Sender: FDA-Public Use
  Company Number: US-ELI_LILLY_AND_COMPANY-US200910007268

PATIENT

DRUGS (17)
  1. HUMULIN R [Suspect]
     Dosage: 28 U, 3/D
     Dates: start: 20080101
  2. LOVAZA [Concomitant]
     Dosage: 3 G, 2/D
  3. HYDROCODONE [Concomitant]
     Dosage: 750 D/F, 3/D
  4. FUROSEMIDE [Concomitant]
     Dosage: 40 MG, DAILY (1/D)
  5. POTASSIUM CHLORIDE [Concomitant]
     Dosage: 20 MG, DAILY (1/D)
  6. SPIRONOLACTONE [Concomitant]
     Dosage: 25 MG, DAILY (1/D)
  7. RAMIPRIL [Concomitant]
     Dosage: 10 MG, DAILY (1/D)
  8. METOCLOPRAMIDE [Concomitant]
     Dosage: 10 MG, DAILY (1/D)
  9. PRAVASTATIN [Concomitant]
     Dosage: 10 MG, DAILY (1/D)
  10. GABAPENTIN [Concomitant]
     Dosage: 100 MG, 2/D
  11. AVALIDE [Concomitant]
     Dosage: UNK, DAILY (1/D)
  12. LEVOTHYROXINE SODIUM [Concomitant]
     Dosage: 400 MG, DAILY (1/D)
  13. CURIDOL [Concomitant]
     Dosage: 50 MG, DAILY (1/D)
  14. CENTRAX [Concomitant]
     Dosage: UNK, DAILY (1/D)
  15. TRAMADOL HCL [Concomitant]
     Dosage: 100 MG, DAILY (1/D)
  16. SIMVASTATIN [Concomitant]
     Dosage: 40 MG, DAILY (1/D)
  17. LEVEMIR [Concomitant]
     Dosage: 40 U, DAILY (1/D)

REACTIONS (2)
  - INTERVERTEBRAL DISC COMPRESSION [None]
  - INTERVERTEBRAL DISC PROTRUSION [None]
